FAERS Safety Report 7308498-6 (Version None)
Quarter: 2011Q1

REPORT INFORMATION
  Report Type: 
  Country: None (occurrence: None)
  Receive Date: 20110223
  Receipt Date: 20100817
  Transmission Date: 20110831
  Serious: Yes (Other)
  Sender: FDA-Public Use
  Company Number: US-BAYER-200944117NA

PATIENT
  Sex: Female

DRUGS (5)
  1. LOESTRIN FE 1/20 [Concomitant]
     Dosage: UNK
     Dates: start: 20071005
  2. YASMIN [Suspect]
  3. ORTHO EVRA [Concomitant]
     Dosage: UNK
     Dates: start: 20060813
  4. VELIVET [Concomitant]
     Dosage: UNK
     Dates: start: 20071010
  5. YAZ [Suspect]
     Indication: CONTRACEPTION
     Dosage: UNK
     Dates: start: 20060924, end: 20070924

REACTIONS (1)
  - CHOLELITHIASIS [None]
